FAERS Safety Report 6487682-8 (Version None)
Quarter: 2009Q4

REPORT INFORMATION
  Report Type: 
  Country: None (occurrence: None)
  Receive Date: 20091210
  Receipt Date: 20091006
  Transmission Date: 20100525
  Serious: No
  Sender: FDA-Public Use
  Company Number: ES-JNJFOC-20091000938

PATIENT
  Sex: Male
  Weight: 100 kg

DRUGS (5)
  1. USTEKINUMAB [Suspect]
     Route: 058
     Dates: start: 20090522
  2. USTEKINUMAB [Suspect]
     Indication: DERMATITIS EXFOLIATIVE
     Route: 058
     Dates: start: 20090522
  3. LOSARTAN [Concomitant]
     Indication: HYPERTENSION
     Route: 048
  4. CONTRACEPTIVE [Concomitant]
     Indication: CONTRACEPTION
  5. ATARAX [Concomitant]
     Indication: PRURITUS

REACTIONS (4)
  - DRUG INEFFECTIVE FOR UNAPPROVED INDICATION [None]
  - FOLLICULITIS [None]
  - HERPES SIMPLEX [None]
  - WEIGHT INCREASED [None]
